FAERS Safety Report 16572483 (Version 11)
Quarter: 2023Q1

REPORT INFORMATION
  Report Type: Report from Study
  Country: GB (occurrence: GB)
  Receive Date: 20190715
  Receipt Date: 20230125
  Transmission Date: 20230418
  Serious: Yes (Hospitalization, Other)
  Sender: FDA-Public Use
  Company Number: GB-ROCHE-1741687

PATIENT
  Age: 60 Year
  Sex: Female

DRUGS (54)
  1. EPIRUBICIN [Suspect]
     Active Substance: EPIRUBICIN
     Indication: HER2 positive breast cancer
     Dosage: 50 MILLIGRAM, QW
     Route: 042
     Dates: start: 20160823, end: 20160830
  2. PACLITAXEL [Suspect]
     Active Substance: PACLITAXEL
     Indication: HER2 positive breast cancer
     Dosage: 141 MILLIGRAM, QW
     Route: 042
     Dates: start: 20150901, end: 20151006
  3. PACLITAXEL [Suspect]
     Active Substance: PACLITAXEL
     Dosage: 111 MG, QW (PLANNED NUMBER OF CYCLES COMPLETED)
     Route: 042
     Dates: start: 20151006, end: 20151215
  4. PACLITAXEL [Suspect]
     Active Substance: PACLITAXEL
     Dosage: 84 MILLIGRAM, QW
     Route: 042
     Dates: start: 20160906, end: 20160906
  5. HYALURONIDASE (HUMAN RECOMBINANT) [Suspect]
     Active Substance: HYALURONIDASE (HUMAN RECOMBINANT)
     Indication: HER2 positive breast cancer
     Dosage: 600 MG, EVERY 3 WEEKS
     Route: 058
     Dates: start: 20151124, end: 20160802
  6. TRASTUZUMAB [Suspect]
     Active Substance: TRASTUZUMAB
     Indication: HER2 positive breast cancer
     Dosage: 600 MILLIGRAM, Q3W
     Route: 058
     Dates: start: 20151124, end: 20160802
  7. TRASTUZUMAB [Suspect]
     Active Substance: TRASTUZUMAB
     Dosage: 600 MILLIGRAM, 3XW
     Route: 058
     Dates: start: 20151124, end: 20160823
  8. HYALURONIDASE [Suspect]
     Active Substance: HYALURONIDASE
     Indication: HER2 positive breast cancer
     Dosage: 600 MG, EVERY 3 WEEKS
     Route: 058
     Dates: start: 20151124, end: 20160802
  9. HYALURONIDASE [Suspect]
     Active Substance: HYALURONIDASE
     Dosage: UNK
     Route: 065
  10. TAXOL [Suspect]
     Active Substance: PACLITAXEL
     Indication: HER2 positive breast cancer
     Dosage: TAXOL
     Route: 042
     Dates: start: 20150901, end: 20151006
  11. TAXOL [Suspect]
     Active Substance: PACLITAXEL
     Dosage: TAXOL
     Route: 042
     Dates: start: 20160906, end: 20160906
  12. TAXOL [Suspect]
     Active Substance: PACLITAXEL
     Indication: HER2 positive breast cancer
     Dosage: 111 MILLIGRAM, QW
     Route: 042
     Dates: start: 20151006, end: 20151215
  13. TAXOL [Suspect]
     Active Substance: PACLITAXEL
     Dosage: 141 MILLIGRAM
     Route: 042
     Dates: start: 20150901, end: 20151006
  14. TAXOL [Suspect]
     Active Substance: PACLITAXEL
     Dosage: 84 MILLIGRAM TAXOL
     Route: 042
     Dates: start: 20160906
  15. RANITIDINE HYDROCHLORIDE [Concomitant]
     Active Substance: RANITIDINE HYDROCHLORIDE
     Dosage: 10 MILLILITER, PRN
     Route: 048
     Dates: end: 20160106
  16. RANITIDINE [Concomitant]
     Active Substance: RANITIDINE
     Dosage: 50 MILLIGRAM, QW
     Route: 042
     Dates: start: 20160906, end: 20160906
  17. RANITIDINE [Concomitant]
     Active Substance: RANITIDINE
     Dosage: 50 MILLIGRAM, QW
     Route: 042
     Dates: start: 20150908, end: 20151215
  18. METOCLOPRAMIDE [Concomitant]
     Active Substance: METOCLOPRAMIDE
     Indication: Product used for unknown indication
     Dosage: 10 MILLIGRAM
     Route: 048
     Dates: start: 20150908, end: 20151215
  19. METOCLOPRAMIDE [Concomitant]
     Active Substance: METOCLOPRAMIDE
     Dosage: 10 MILLIGRAM
     Route: 048
     Dates: start: 20160823, end: 20160906
  20. ACETAMINOPHEN [Concomitant]
     Active Substance: ACETAMINOPHEN
     Indication: Product used for unknown indication
     Dosage: 500 MG, 4X/DAY, 0.25 DAY
     Route: 048
     Dates: end: 20160925
  21. ACETAMINOPHEN [Concomitant]
     Active Substance: ACETAMINOPHEN
     Dosage: 500 MILLIGRAM
     Route: 048
     Dates: end: 20160925
  22. ENOXAPARIN [Concomitant]
     Active Substance: ENOXAPARIN
     Indication: Product used for unknown indication
     Dosage: 40 MILLIGRAM
     Route: 058
     Dates: start: 20160817, end: 20160913
  23. VANCOMYCIN [Concomitant]
     Active Substance: VANCOMYCIN
     Indication: Neutropenia
     Dosage: 1500 MILLIGRAM
     Route: 042
     Dates: start: 20160912, end: 20160912
  24. VANCOMYCIN [Concomitant]
     Active Substance: VANCOMYCIN
     Dosage: UNK
     Route: 042
     Dates: start: 20160912, end: 20160913
  25. DEXAMETHASONE [Concomitant]
     Active Substance: DEXAMETHASONE
     Dosage: 8 MILLIGRAM, QW
     Route: 042
     Dates: start: 20150908, end: 20151215
  26. DEXAMETHASONE [Concomitant]
     Active Substance: DEXAMETHASONE
     Dosage: 8 MILLIGRAM, QW
     Route: 042
     Dates: start: 20160823, end: 20160906
  27. ONDANSETRON [Concomitant]
     Active Substance: ONDANSETRON
     Indication: Product used for unknown indication
     Dosage: 8 MILLIGRAM, QW
     Route: 048
     Dates: start: 20151006, end: 20151215
  28. ONDANSETRON [Concomitant]
     Active Substance: ONDANSETRON
     Dosage: 8 MILLIGRAM, QW
     Route: 048
     Dates: start: 20150823, end: 20160906
  29. HYDROCORTISONE [Concomitant]
     Active Substance: HYDROCORTISONE
     Indication: Product used for unknown indication
     Dosage: UNK
     Route: 061
     Dates: start: 20160817, end: 20160913
  30. ACYCLOVIR [Concomitant]
     Active Substance: ACYCLOVIR
     Indication: Product used for unknown indication
     Dosage: 25 PERCENT, QD
     Route: 061
     Dates: start: 20160913, end: 20160925
  31. ACYCLOVIR [Concomitant]
     Active Substance: ACYCLOVIR
     Dosage: 5 PERCENT, 5X/DAY
     Route: 061
     Dates: start: 20160913, end: 20160925
  32. GENTAMICIN [Concomitant]
     Active Substance: GENTAMICIN
     Indication: Product used for unknown indication
     Dosage: 320 MILLIGRAM, QD
     Route: 042
     Dates: start: 20160825, end: 20160827
  33. ENALAPRIL [Concomitant]
     Active Substance: ENALAPRIL
     Indication: Product used for unknown indication
     Dosage: 10 MILLIGRAM, QD
     Route: 048
     Dates: start: 20060823, end: 20160925
  34. ENALAPRIL [Concomitant]
     Active Substance: ENALAPRIL
     Dosage: 10 MILLIGRAM
     Route: 048
     Dates: start: 20060823, end: 20160901
  35. CHLORHEXIDINE GLUCONATE [Concomitant]
     Active Substance: CHLORHEXIDINE GLUCONATE
     Indication: Product used for unknown indication
     Dosage: 20 MILLILITER, QD
     Route: 044
     Dates: start: 20160913, end: 20160925
  36. CHLORHEXIDINE GLUCONATE [Concomitant]
     Active Substance: CHLORHEXIDINE GLUCONATE
     Dosage: 10 ML, 2X/DAY (EVERY 0.5 DAYS), 10 MILLILITER, BID
     Route: 044
     Dates: start: 20160913, end: 20160925
  37. Bepanthen [Concomitant]
     Dosage: UNK
     Route: 061
     Dates: start: 20160913, end: 20160914
  38. PIPERACILLIN SODIUM\TAZOBACTAM SODIUM [Concomitant]
     Active Substance: PIPERACILLIN SODIUM\TAZOBACTAM SODIUM
     Indication: Neutropenia
     Dosage: 18 GRAM, QD
     Route: 042
     Dates: start: 20160911, end: 20160913
  39. PIPERACILLIN SODIUM\TAZOBACTAM SODIUM [Concomitant]
     Active Substance: PIPERACILLIN SODIUM\TAZOBACTAM SODIUM
     Dosage: 4.5 GRAM, Q4D
     Route: 042
     Dates: start: 20160911, end: 20160913
  40. CHLORPHENIRAMINE MALEATE [Concomitant]
     Active Substance: CHLORPHENIRAMINE MALEATE
     Indication: Product used for unknown indication
     Dosage: 10 MILLIGRAM, QW
     Route: 042
     Dates: start: 20150908, end: 20151215
  41. CHLORPHENIRAMINE MALEATE [Concomitant]
     Active Substance: CHLORPHENIRAMINE MALEATE
     Dosage: 10 MILLIGRAM, QW
     Route: 042
     Dates: start: 20160906, end: 20160906
  42. FLUCONAZOLE [Concomitant]
     Active Substance: FLUCONAZOLE
     Indication: Product used for unknown indication
     Dosage: 50 MILLIGRAM, QD
     Route: 048
     Dates: start: 20160908, end: 201609
  43. FLUCONAZOLE [Concomitant]
     Active Substance: FLUCONAZOLE
     Dosage: 500 MILLIGRAM, QD
     Route: 048
     Dates: start: 20160912, end: 20160912
  44. FLUCONAZOLE [Concomitant]
     Active Substance: FLUCONAZOLE
     Dosage: UNK, QD
     Route: 048
     Dates: start: 20160918, end: 201609
  45. HYDROCORTISONE [Concomitant]
     Active Substance: HYDROCORTISONE
     Dosage: 100 MILLIGRAM, QW
     Route: 042
     Dates: start: 20160906, end: 20160906
  46. IBUPROFEN [Concomitant]
     Active Substance: IBUPROFEN
     Indication: Product used for unknown indication
     Dosage: UNK
     Route: 065
     Dates: start: 20160925, end: 20160925
  47. OMEPRAZOLE [Concomitant]
     Active Substance: OMEPRAZOLE
     Indication: Product used for unknown indication
     Dosage: 20 MILLIGRAM, QD
     Route: 048
     Dates: end: 20160106
  48. AMOXICILLIN\CLAVULANATE POTASSIUM [Concomitant]
     Active Substance: AMOXICILLIN\CLAVULANATE POTASSIUM
     Dosage: 500/125 MG, EVERY 0.33DAY
     Route: 048
     Dates: start: 20150922, end: 20151004
  49. DEXAMETHASONE [Concomitant]
     Active Substance: DEXAMETHASONE
     Indication: Ascites
     Dosage: 8 MILLIGRAM, QD
     Route: 048
     Dates: start: 20160817, end: 20160925
  50. FUROSEMIDE [Concomitant]
     Active Substance: FUROSEMIDE
     Indication: Ascites
     Dosage: 20 MILLIGRAM, QD
     Route: 048
     Dates: start: 20160817, end: 20160925
  51. GABAPENTIN [Concomitant]
     Active Substance: GABAPENTIN
     Dosage: 900 MILLIGRAM, QD
     Route: 048
     Dates: start: 20160118, end: 20160925
  52. BEPANTHENE PLUS [Concomitant]
     Indication: Product used for unknown indication
     Dosage: UNK
     Route: 061
     Dates: start: 20160913, end: 20160914
  53. DEXPANTHENOL [Concomitant]
     Active Substance: DEXPANTHENOL
     Indication: Product used for unknown indication
     Dosage: UNK
     Route: 061
     Dates: start: 20160913, end: 20160914
  54. CALCIUM CARBONATE\SODIUM ALGINATE\SODIUM BICARBONATE [Concomitant]
     Active Substance: CALCIUM CARBONATE\SODIUM ALGINATE\SODIUM BICARBONATE
     Indication: Product used for unknown indication
     Dosage: 10 MILLILITER, PRN
     Route: 048
     Dates: end: 20160106

REACTIONS (13)
  - Blood alkaline phosphatase increased [Not Recovered/Not Resolved]
  - Condition aggravated [Recovered/Resolved with Sequelae]
  - Neuropathy peripheral [Unknown]
  - Ascites [Recovered/Resolved with Sequelae]
  - Neutropenia [Recovered/Resolved with Sequelae]
  - Aspartate aminotransferase increased [Recovered/Resolved with Sequelae]
  - Alanine aminotransferase increased [Recovered/Resolved with Sequelae]
  - Blood bilirubin increased [Unknown]
  - Muscle strain [Recovered/Resolved]
  - Epigastric discomfort [Recovered/Resolved]
  - Nail infection [Unknown]
  - White blood cell count decreased [Recovered/Resolved]
  - Diarrhoea [Recovered/Resolved]

NARRATIVE: CASE EVENT DATE: 20160118
